FAERS Safety Report 10647331 (Version 2)
Quarter: 2014Q4

REPORT INFORMATION
  Report Type: Spontaneous
  Country: SE (occurrence: SE)
  Receive Date: 20141211
  Receipt Date: 20141229
  Transmission Date: 20150529
  Serious: Yes (Hospitalization)
  Sender: FDA-Public Use
  Company Number: SE-RECKITT BENCKISER PHARMACEUTICAL, INC-RB-74090-2014

PATIENT
  Age: 20 Year
  Sex: Female

DRUGS (1)
  1. BUPRENORPHINE [Suspect]
     Active Substance: BUPRENORPHINE
     Indication: PRODUCT USED FOR UNKNOWN INDICATION
     Dosage: UNK
     Route: 042

REACTIONS (4)
  - Infection [Unknown]
  - Pyrexia [Unknown]
  - C-reactive protein increased [Unknown]
  - Intentional product misuse [Unknown]
